FAERS Safety Report 14317753 (Version 1)
Quarter: 2017Q4

REPORT INFORMATION
  Report Type: Report from Study
  Country: US (occurrence: US)
  Receive Date: 20171222
  Receipt Date: 20171222
  Transmission Date: 20180321
  Serious: Yes (Other)
  Sender: FDA-Public Use
  Company Number: US-GILEAD-2017-0312311

PATIENT
  Age: 59 Year
  Sex: Female
  Weight: 95.24 kg

DRUGS (6)
  1. AMBRISENTAN [Suspect]
     Active Substance: AMBRISENTAN
     Indication: PRODUCT USED FOR UNKNOWN INDICATION
     Dosage: UNK
     Route: 065
  2. OPSUMIT [Suspect]
     Active Substance: MACITENTAN
     Indication: PRODUCT USED FOR UNKNOWN INDICATION
     Route: 065
  3. REMODULIN [Suspect]
     Active Substance: TREPROSTINIL
     Indication: PULMONARY ARTERIAL HYPERTENSION
     Dosage: 0.096 UG/KG, UNK
     Route: 058
     Dates: start: 20110815
  4. UPTRAVI [Concomitant]
     Active Substance: SELEXIPAG
  5. REMODULIN [Suspect]
     Active Substance: TREPROSTINIL
     Dosage: 0.093 UG/KG, UNK
     Route: 058
  6. REMODULIN [Suspect]
     Active Substance: TREPROSTINIL
     Dosage: 0.083 UG/KG, UNK
     Route: 058
     Dates: start: 20171204

REACTIONS (14)
  - Panic attack [Unknown]
  - Thalassaemia [Unknown]
  - Feeling abnormal [Unknown]
  - Dizziness [Unknown]
  - Impaired gastric emptying [Unknown]
  - Device dislocation [Unknown]
  - Nasal congestion [Unknown]
  - Weight increased [Unknown]
  - Nausea [Unknown]
  - Chest discomfort [Unknown]
  - Headache [Unknown]
  - Peripheral swelling [Unknown]
  - Dyspnoea [Unknown]
  - Diabetes mellitus [Unknown]
